FAERS Safety Report 16279788 (Version 3)
Quarter: 2022Q3

REPORT INFORMATION
  Report Type: Spontaneous
  Country: US (occurrence: None)
  Receive Date: 20190507
  Receipt Date: 20220729
  Transmission Date: 20221027
  Serious: Yes (Other)
  Sender: FDA-Public Use
  Company Number: 2019SE61669

PATIENT
  Age: 23066 Day
  Sex: Male
  Weight: 83.9 kg

DRUGS (83)
  1. PRILOSEC [Suspect]
     Active Substance: OMEPRAZOLE MAGNESIUM
     Indication: Gastrooesophageal reflux disease
     Route: 048
     Dates: start: 200801, end: 201012
  2. PRILOSEC [Suspect]
     Active Substance: OMEPRAZOLE MAGNESIUM
     Indication: Gastrooesophageal reflux disease
     Route: 048
     Dates: start: 2010, end: 2014
  3. PRILOSEC [Suspect]
     Active Substance: OMEPRAZOLE MAGNESIUM
     Indication: Gastrooesophageal reflux disease
     Dosage: GENERIC
     Route: 065
     Dates: start: 2010, end: 2014
  4. PRILOSEC [Suspect]
     Active Substance: OMEPRAZOLE MAGNESIUM
     Indication: Gastrooesophageal reflux disease
     Route: 048
     Dates: start: 20110425
  5. PRILOSEC [Suspect]
     Active Substance: OMEPRAZOLE MAGNESIUM
     Indication: Gastrooesophageal reflux disease
     Route: 048
     Dates: start: 20080415
  6. PRILOSEC [Suspect]
     Active Substance: OMEPRAZOLE MAGNESIUM
     Indication: Gastrooesophageal reflux disease
     Route: 048
     Dates: start: 20080315
  7. PRILOSEC [Suspect]
     Active Substance: OMEPRAZOLE MAGNESIUM
     Indication: Gastrooesophageal reflux disease
     Route: 048
     Dates: start: 20080406
  8. PRILOSEC [Suspect]
     Active Substance: OMEPRAZOLE MAGNESIUM
     Indication: Gastrooesophageal reflux disease
     Route: 048
     Dates: start: 20081016
  9. PRILOSEC [Suspect]
     Active Substance: OMEPRAZOLE MAGNESIUM
     Indication: Gastrooesophageal reflux disease
     Route: 048
     Dates: start: 20081120
  10. PRILOSEC [Suspect]
     Active Substance: OMEPRAZOLE MAGNESIUM
     Indication: Gastrooesophageal reflux disease
     Route: 048
     Dates: start: 20090610
  11. PRILOSEC [Suspect]
     Active Substance: OMEPRAZOLE MAGNESIUM
     Indication: Gastrooesophageal reflux disease
     Route: 048
     Dates: start: 20091006
  12. PRILOSEC OTC [Suspect]
     Active Substance: OMEPRAZOLE MAGNESIUM
     Indication: Gastrooesophageal reflux disease
     Route: 048
     Dates: start: 200801, end: 201012
  13. PRILOSEC OTC [Suspect]
     Active Substance: OMEPRAZOLE MAGNESIUM
     Indication: Gastrooesophageal reflux disease
     Route: 048
     Dates: start: 2010, end: 2014
  14. NEXIUM 24HR [Suspect]
     Active Substance: ESOMEPRAZOLE MAGNESIUM
     Indication: Gastrooesophageal reflux disease
     Route: 048
     Dates: start: 2010, end: 2014
  15. PREVACID 24 HR [Suspect]
     Active Substance: LANSOPRAZOLE
     Indication: Gastrooesophageal reflux disease
     Route: 065
     Dates: start: 2010, end: 2014
  16. ZEGERID OTC [Suspect]
     Active Substance: OMEPRAZOLE\SODIUM BICARBONATE
     Indication: Gastrooesophageal reflux disease
     Route: 065
     Dates: start: 2010, end: 2014
  17. AMLODIPINE [Concomitant]
     Active Substance: AMLODIPINE BESYLATE
     Indication: Blood pressure abnormal
     Dates: start: 2007
  18. TACROLIMUS [Concomitant]
     Active Substance: TACROLIMUS
     Indication: Ill-defined disorder
     Dates: start: 2007
  19. MYCOPHENOLIC ACID [Concomitant]
     Active Substance: MYCOPHENOLIC ACID
     Indication: Ill-defined disorder
     Dates: start: 2007
  20. COLCHICINE [Concomitant]
     Active Substance: COLCHICINE
     Indication: Gout
     Dates: start: 2007
  21. SENNA PLUS [Concomitant]
     Active Substance: DOCUSATE SODIUM\SENNOSIDES\SENNOSIDES A AND B
     Indication: Constipation
     Dates: start: 2007
  22. ASPIRIN [Concomitant]
     Active Substance: ASPIRIN
     Indication: Pain
     Dosage: AS REQUIRED
     Dates: start: 2007
  23. ZANTAC [Concomitant]
     Active Substance: RANITIDINE HYDROCHLORIDE
     Dosage: 300
     Dates: start: 2018
  24. FERRITIN [Concomitant]
     Active Substance: FERRITIN
  25. ZOFRAN [Concomitant]
     Active Substance: ONDANSETRON HYDROCHLORIDE
  26. SODIUM BICARBONATE [Concomitant]
     Active Substance: SODIUM BICARBONATE
  27. ALPRAZOLAM [Concomitant]
     Active Substance: ALPRAZOLAM
  28. CEPHALEXIN [Concomitant]
     Active Substance: CEPHALEXIN
  29. FINASTERIDE [Concomitant]
     Active Substance: FINASTERIDE
  30. TAMSULOSIN [Concomitant]
     Active Substance: TAMSULOSIN
  31. FLEXERIL [Concomitant]
     Active Substance: CYCLOBENZAPRINE HYDROCHLORIDE
  32. OXYCODONE [Concomitant]
     Active Substance: OXYCODONE
  33. DOCUSATE [Concomitant]
     Active Substance: DOCUSATE
  34. DULCOLAX NOS [Concomitant]
     Active Substance: BISACODYL OR DOCUSATE SODIUM
  35. CALCITRIOL [Concomitant]
     Active Substance: CALCITRIOL
  36. VITAMIN B12 [Concomitant]
     Active Substance: CYANOCOBALAMIN
  37. FOLATE SODIUM [Concomitant]
     Active Substance: FOLATE SODIUM
  38. METOPROLOL SUCCINATE [Concomitant]
     Active Substance: METOPROLOL SUCCINATE
  39. LOSARTAN [Concomitant]
     Active Substance: LOSARTAN
  40. POTASSIUM CHLORIDE [Concomitant]
     Active Substance: POTASSIUM CHLORIDE
  41. ACETAMINOPHEN\OXYCODONE HYDROCHLORIDE [Concomitant]
     Active Substance: ACETAMINOPHEN\OXYCODONE HYDROCHLORIDE
  42. VITAMIN A [Concomitant]
     Active Substance: VITAMIN A
  43. ASCORBIC ACID [Concomitant]
     Active Substance: ASCORBIC ACID
  44. CALCIUM ACETATE [Concomitant]
     Active Substance: CALCIUM ACETATE
  45. GENTAMICIN [Concomitant]
     Active Substance: GENTAMICIN
  46. HERBALS\TURMERIC [Concomitant]
     Active Substance: HERBALS\TURMERIC
  47. FISH OIL [Concomitant]
     Active Substance: FISH OIL
  48. LIDEX [Concomitant]
     Active Substance: FLUOCINONIDE
  49. VIGAMOX [Concomitant]
     Active Substance: MOXIFLOXACIN HYDROCHLORIDE
  50. NEVANAC [Concomitant]
     Active Substance: NEPAFENAC
  51. FENTANYL [Concomitant]
     Active Substance: FENTANYL
  52. MIDAZOLAM [Concomitant]
     Active Substance: MIDAZOLAM
  53. CYCLOPENTOLATE [Concomitant]
     Active Substance: CYCLOPENTOLATE
  54. VITAMINS [Concomitant]
     Active Substance: VITAMINS
  55. BENADRYL [Concomitant]
     Active Substance: DIPHENHYDRAMINE HYDROCHLORIDE
  56. REGLAN [Concomitant]
     Active Substance: METOCLOPRAMIDE HYDROCHLORIDE
  57. FERUMOXYTOL [Concomitant]
     Active Substance: FERUMOXYTOL
  58. CHOLECALCIFEROL [Concomitant]
     Active Substance: CHOLECALCIFEROL
  59. VITAMIN E [Concomitant]
     Active Substance: .ALPHA.-TOCOPHEROL
  60. NEURONTIN [Concomitant]
     Active Substance: GABAPENTIN
  61. BACTRIM [Concomitant]
     Active Substance: SULFAMETHOXAZOLE\TRIMETHOPRIM
  62. ZOVIRAX [Concomitant]
     Active Substance: ACYCLOVIR
  63. TOBRADEX [Concomitant]
     Active Substance: DEXAMETHASONE\TOBRAMYCIN
  64. ASACOL [Concomitant]
     Active Substance: MESALAMINE
  65. PHENTERMINE [Concomitant]
     Active Substance: PHENTERMINE
  66. CIALIS [Concomitant]
     Active Substance: TADALAFIL
  67. FLOMAX [Concomitant]
     Active Substance: TAMSULOSIN HYDROCHLORIDE
  68. ENALAPRIL [Concomitant]
     Active Substance: ENALAPRIL
  69. SPIRONOLACTONE [Concomitant]
     Active Substance: SPIRONOLACTONE
  70. FUROSEMIDE [Concomitant]
     Active Substance: FUROSEMIDE
  71. VITAMIN D2 [Concomitant]
     Active Substance: ERGOCALCIFEROL
  72. METHOCARBAMOL [Concomitant]
     Active Substance: METHOCARBAMOL
  73. CYCLOBENZAPRINE [Concomitant]
     Active Substance: CYCLOBENZAPRINE
  74. ALFUZOSIN [Concomitant]
     Active Substance: ALFUZOSIN
  75. FLUZONE [Concomitant]
     Active Substance: INFLUENZA A VIRUS A/CALIFORNIA/7/2009 X-179A (H1N1) ANTIGEN (FORMALDEHYDE INACTIVATED)\INFLUENZA A V
  76. PREVNAR [Concomitant]
     Active Substance: PNEUMOCOCCAL 7-VALENT CONJUGATE VACCINE (DIPHTHERIA CRM197 PROTEIN)
  77. FERUMOXYTOL [Concomitant]
     Active Substance: FERUMOXYTOL
  78. CALCIUM [Concomitant]
     Active Substance: CALCIUM
  79. METOPROLOL [Concomitant]
     Active Substance: METOPROLOL
  80. ACROCHORDONS [Concomitant]
  81. STOOL SOFTENER (DOCUSATE) [Concomitant]
     Active Substance: DOCUSATE
  82. NEVI [Concomitant]
  83. VITAMINS [Concomitant]
     Active Substance: VITAMINS

REACTIONS (7)
  - Chronic kidney disease [Not Recovered/Not Resolved]
  - End stage renal disease [Unknown]
  - Nephrogenic anaemia [Unknown]
  - Hyperparathyroidism secondary [Unknown]
  - Renal failure [Unknown]
  - Anxiety [Unknown]
  - Stress [Unknown]

NARRATIVE: CASE EVENT DATE: 20121029
